FAERS Safety Report 17120668 (Version 1)
Quarter: 2019Q4

REPORT INFORMATION
  Report Type: Spontaneous
  Country: US (occurrence: US)
  Receive Date: 20191113
  Receipt Date: 20191113
  Transmission Date: 20200122
  Serious: No
  Sender: FDA-Public Use
  Company Number: None

PATIENT
  Age: 50 Year
  Sex: Female

DRUGS (10)
  1. PREDNISONE. [Concomitant]
     Active Substance: PREDNISONE
  2. BACLOFEN. [Concomitant]
     Active Substance: BACLOFEN
  3. METHOTREXATE. [Concomitant]
     Active Substance: METHOTREXATE
  4. TRAZADONE TAB [Concomitant]
  5. DULOXETINE CAP [Concomitant]
     Active Substance: DULOXETINE HYDROCHLORIDE
  6. DICLOFENAC [Concomitant]
     Active Substance: DICLOFENAC
  7. FOLIC ACID TAB [Concomitant]
  8. LAMOTRIGINE TAB [Concomitant]
  9. HUMIRA [Suspect]
     Active Substance: ADALIMUMAB
     Route: 058
  10. GABAPENTIN TAB [Concomitant]

REACTIONS (2)
  - Arthralgia [None]
  - Pruritus [None]
